FAERS Safety Report 15397708 (Version 2)
Quarter: 2019Q2

REPORT INFORMATION
  Report Type: Report from Study
  Country: None (occurrence: BR)
  Receive Date: 20180918
  Receipt Date: 20190605
  Transmission Date: 20190711
  Serious: Yes (Other)
  Sender: FDA-Public Use
  Company Number: BR-ABBVIE-18K-020-2485056-00

PATIENT
  Sex: Female

DRUGS (2)
  1. HUMIRA [Suspect]
     Active Substance: ADALIMUMAB
     Indication: RHEUMATOID ARTHRITIS
     Route: 058
     Dates: start: 20090111, end: 201808
  2. HUMIRA [Suspect]
     Active Substance: ADALIMUMAB
     Route: 058

REACTIONS (8)
  - Pain [Recovering/Resolving]
  - General physical health deterioration [Unknown]
  - Eye disorder [Unknown]
  - Arthritis [Unknown]
  - Pain in extremity [Recovering/Resolving]
  - Disturbance in attention [Unknown]
  - Arthralgia [Unknown]
  - Neuritis [Unknown]
